FAERS Safety Report 6268404-2 (Version None)
Quarter: 2009Q3

REPORT INFORMATION
  Report Type: 
  Country: None (occurrence: None)
  Receive Date: 20090715
  Receipt Date: 20090702
  Transmission Date: 20100115
  Serious: Yes (Other)
  Sender: FDA-Public Use
  Company Number: PHHY2009DE27189

PATIENT
  Sex: Female
  Weight: 63 kg

DRUGS (2)
  1. FEMARA [Suspect]
     Indication: BREAST CANCER
     Dosage: 2.5 MG DAILY
     Route: 048
     Dates: start: 20071011, end: 20090101
  2. CALCILAC [Concomitant]
     Dosage: 2 X 1

REACTIONS (3)
  - BACK PAIN [None]
  - MONOPLEGIA [None]
  - PAIN [None]
